FAERS Safety Report 19816583 (Version 2)
Quarter: 2021Q3

REPORT INFORMATION
  Report Type: Spontaneous
  Country: US (occurrence: US)
  Receive Date: 20210909
  Receipt Date: 20210920
  Transmission Date: 20211014
  Serious: No
  Sender: FDA-Public Use
  Company Number: US-B.I. PHARMACEUTICALS,INC./RIDGEFIELD-2021-BI-125634

PATIENT
  Sex: Male

DRUGS (1)
  1. SPIRIVA RESPIMAT [Suspect]
     Active Substance: TIOTROPIUM BROMIDE
     Indication: ASTHMA
     Dosage: 1.25 MCG, 2 PUFFS DAILY
     Route: 055

REACTIONS (4)
  - Drug ineffective [Unknown]
  - Product complaint [Unknown]
  - Cough [Recovering/Resolving]
  - Device malfunction [Unknown]
